FAERS Safety Report 8055725-6 (Version None)
Quarter: 2012Q1

REPORT INFORMATION
  Report Type: 
  Country: None (occurrence: None)
  Receive Date: 20120119
  Receipt Date: 20120113
  Transmission Date: 20120608
  Serious: Yes (Other)
  Sender: FDA-Public Use
  Company Number: HK-JNJFOC-20120105889

PATIENT
  Age: 5 Year
  Sex: Female

DRUGS (2)
  1. ANTI-TUBERCULOSIS DRUGS [Suspect]
     Indication: TUBERCULOSIS
     Route: 065
  2. ITRACONAZOLE [Suspect]
     Indication: PROPHYLAXIS
     Route: 065

REACTIONS (2)
  - MUCOCUTANEOUS CANDIDIASIS [None]
  - PNEUMONIA BACTERIAL [None]
